FAERS Safety Report 6792076-1 (Version None)
Quarter: 2010Q2

REPORT INFORMATION
  Report Type: 
  Country: None (occurrence: None)
  Receive Date: 20100624
  Receipt Date: 20080722
  Transmission Date: 20101027
  Serious: No
  Sender: FDA-Public Use
  Company Number: US-PFIZER INC-2008060902

PATIENT
  Age: 77 Year
  Sex: Male

DRUGS (10)
  1. NIFEDIPINE [Suspect]
     Indication: HYPERTENSION
     Dates: start: 20071101
  2. THEOPHYLLINE [Interacting]
     Indication: DYSPNOEA
     Dates: start: 19860101
  3. POTASSIUM [Concomitant]
  4. HYDROCHLOROTHIAZIDE [Concomitant]
     Indication: HYPERTENSION
  5. OMEPRAZOLE [Concomitant]
     Indication: GASTROOESOPHAGEAL REFLUX DISEASE
  6. RAMIPRIL [Concomitant]
     Indication: HYPERTENSION
  7. LIPITOR [Concomitant]
     Indication: BLOOD CHOLESTEROL INCREASED
  8. CALCIUM CARBONATE [Concomitant]
     Indication: OSTEOPENIA
  9. VITAMIN D [Concomitant]
  10. FOSAMAX [Concomitant]

REACTIONS (3)
  - DRUG INTERACTION [None]
  - INSOMNIA [None]
  - NERVOUSNESS [None]
